FAERS Safety Report 8515791-8 (Version None)
Quarter: 2012Q3

REPORT INFORMATION
  Report Type: 
  Country: None (occurrence: None)
  Receive Date: 20120705
  Receipt Date: 20120624
  Transmission Date: 20120928
  Serious: Yes (Hospitalization, Other)
  Sender: FDA-Public Use
  Company Number: 2012SP027881

PATIENT
  Age: 57 Year
  Sex: Male
  Weight: 66.5 kg

DRUGS (19)
  1. METHADERM [Concomitant]
  2. TRANSAMINE CAP [Concomitant]
  3. RIBAVIRIN [Suspect]
     Indication: HEPATITIS C
     Dosage: 800 MG;QD;UNK
     Dates: start: 20111006
  4. OXAROL [Concomitant]
  5. UREPEARL [Concomitant]
  6. ADONA [Concomitant]
  7. PENTAZOCINE LACTATE [Concomitant]
  8. PEGINTERFERON ALFA-2B [Suspect]
     Indication: HEPATITIS C
     Dosage: 100 MCG;QW;UNK
     Dates: start: 20111006
  9. CEFAZOLIN SODIUM [Concomitant]
  10. METHADERM [Concomitant]
  11. MK-7009 (INVESTIGATIONAL DRUG) [Suspect]
     Indication: HEPATITIS C
     Dosage: 300 MG;BID;UNK
     Dates: start: 20111006
  12. OLOPATADINE HCL [Concomitant]
  13. OXAROL [Concomitant]
  14. SOLITA [Concomitant]
  15. MICARDIS [Concomitant]
  16. FAMOTIDINE [Concomitant]
  17. NORVASC [Concomitant]
  18. LOXONIN /00890702/ [Concomitant]
  19. ATROPINE [Concomitant]

REACTIONS (1)
  - HEPATIC NEOPLASM MALIGNANT [None]
